FAERS Safety Report 19172773 (Version 2)
Quarter: 2021Q3

REPORT INFORMATION
  Report Type: Report from Study
  Country: JP (occurrence: JP)
  Receive Date: 20210423
  Receipt Date: 20210729
  Transmission Date: 20211014
  Serious: Yes (Other)
  Sender: FDA-Public Use
  Company Number: JP-ROCHE-2813719

PATIENT
  Age: 49 Year
  Sex: Male
  Weight: 76 kg

DRUGS (28)
  1. APREPITANT. [Concomitant]
     Active Substance: APREPITANT
     Dosage: DAY2?3
     Route: 048
     Dates: start: 20201203, end: 20201204
  2. OXALIPLATIN. [Concomitant]
     Active Substance: OXALIPLATIN
     Indication: RECTAL ADENOCARCINOMA
     Dosage: DAY1
     Route: 041
     Dates: start: 20201202, end: 20201202
  3. IRINOTECAN HYDROCHLORIDE HYDRATE [Concomitant]
     Active Substance: IRINOTECAN HYDROCHLORIDE
     Dosage: DAY1
     Route: 041
     Dates: start: 20210106, end: 20210310
  4. IRINOTECAN HYDROCHLORIDE HYDRATE [Concomitant]
     Active Substance: IRINOTECAN HYDROCHLORIDE
     Dosage: DAY1
     Route: 041
     Dates: start: 20210407
  5. PALONOSETRON HYDROCHLORIDE. [Concomitant]
     Active Substance: PALONOSETRON HYDROCHLORIDE
     Dosage: DAY1
     Route: 042
     Dates: start: 20210106, end: 20210310
  6. DEXAMETHASONE SODIUM PHOSPHATE. [Concomitant]
     Active Substance: DEXAMETHASONE SODIUM PHOSPHATE
     Dosage: DAY1
     Route: 042
     Dates: start: 20210407
  7. APREPITANT. [Concomitant]
     Active Substance: APREPITANT
     Dosage: DAY1
     Route: 048
     Dates: start: 20210106, end: 20210310
  8. APREPITANT. [Concomitant]
     Active Substance: APREPITANT
     Dosage: DAY2?3
     Route: 048
     Dates: start: 20210107, end: 20210312
  9. BEVACIZUMAB. [Suspect]
     Active Substance: BEVACIZUMAB
     Dosage: DAY1
     Route: 041
     Dates: start: 20210106, end: 20210310
  10. CAPECITABINE. [Suspect]
     Active Substance: CAPECITABINE
     Dosage: DAY1?15
     Route: 048
     Dates: start: 20210407
  11. APREPITANT. [Concomitant]
     Active Substance: APREPITANT
     Dosage: DAY1
     Route: 048
     Dates: start: 20201202, end: 20201202
  12. APREPITANT. [Concomitant]
     Active Substance: APREPITANT
     Dosage: DAY1
     Route: 048
     Dates: start: 20210407
  13. LOPERAMIDE HYDROCHLORIDE. [Concomitant]
     Active Substance: LOPERAMIDE HYDROCHLORIDE
     Dosage: DOSAGE IS UNCERTAIN.
     Route: 065
  14. CAPECITABINE. [Suspect]
     Active Substance: CAPECITABINE
     Dosage: DAY1?15
     Route: 048
     Dates: start: 20210106, end: 20210324
  15. OXALIPLATIN. [Concomitant]
     Active Substance: OXALIPLATIN
     Dosage: DAY1
     Route: 041
     Dates: start: 20210106, end: 20210310
  16. PALONOSETRON HYDROCHLORIDE. [Concomitant]
     Active Substance: PALONOSETRON HYDROCHLORIDE
     Dosage: DAY1
     Route: 042
     Dates: start: 20201202, end: 20201202
  17. DEXAMETHASONE SODIUM PHOSPHATE. [Concomitant]
     Active Substance: DEXAMETHASONE SODIUM PHOSPHATE
     Dosage: DAY1
     Route: 042
     Dates: start: 20210106, end: 20210310
  18. BEVACIZUMAB. [Suspect]
     Active Substance: BEVACIZUMAB
     Dosage: DAY1
     Route: 041
     Dates: start: 20210407
  19. OXALIPLATIN. [Concomitant]
     Active Substance: OXALIPLATIN
     Dosage: DAY1
     Route: 041
     Dates: start: 20210407
  20. DEXAMETHASONE. [Concomitant]
     Active Substance: DEXAMETHASONE
     Dosage: DAY2?4
     Route: 048
     Dates: start: 20210408
  21. BEVACIZUMAB. [Suspect]
     Active Substance: BEVACIZUMAB
     Indication: RECTAL ADENOCARCINOMA
     Dosage: DAY1
     Route: 041
     Dates: start: 20201202, end: 20201202
  22. APREPITANT. [Concomitant]
     Active Substance: APREPITANT
     Dosage: DAY2?3
     Route: 048
     Dates: start: 20210408
  23. IRINOTECAN HYDROCHLORIDE HYDRATE [Concomitant]
     Active Substance: IRINOTECAN HYDROCHLORIDE
     Indication: RECTAL ADENOCARCINOMA
     Dosage: DAY1
     Route: 041
     Dates: start: 20201202, end: 20201202
  24. CAPECITABINE. [Suspect]
     Active Substance: CAPECITABINE
     Indication: RECTAL ADENOCARCINOMA
     Dosage: DAY1?15
     Route: 048
     Dates: start: 20201202, end: 20201216
  25. PALONOSETRON HYDROCHLORIDE. [Concomitant]
     Active Substance: PALONOSETRON HYDROCHLORIDE
     Dosage: DAY1
     Route: 042
     Dates: start: 20210407
  26. DEXAMETHASONE SODIUM PHOSPHATE. [Concomitant]
     Active Substance: DEXAMETHASONE SODIUM PHOSPHATE
     Dosage: DAY1
     Route: 042
     Dates: start: 20201202, end: 20201202
  27. DEXAMETHASONE. [Concomitant]
     Active Substance: DEXAMETHASONE
     Dosage: DAY2?4
     Route: 048
     Dates: start: 20201203, end: 20201205
  28. DEXAMETHASONE. [Concomitant]
     Active Substance: DEXAMETHASONE
     Dosage: DAY2?4
     Route: 048
     Dates: start: 20210107, end: 20210313

REACTIONS (2)
  - Hypertension [Unknown]
  - Embolism venous [Recovered/Resolved]

NARRATIVE: CASE EVENT DATE: 20210127
